FAERS Safety Report 7799997-1 (Version None)
Quarter: 2011Q4

REPORT INFORMATION
  Report Type: 
  Country: None (occurrence: None)
  Receive Date: 20111006
  Receipt Date: 20110921
  Transmission Date: 20120403
  Serious: Yes (Hospitalization, Other)
  Sender: FDA-Public Use
  Company Number: JP-ROCHE-796257

PATIENT
  Sex: Male

DRUGS (3)
  1. XELODA [Suspect]
     Indication: COLORECTAL CANCER RECURRENT
     Route: 048
  2. AVASTIN [Suspect]
     Indication: COLORECTAL CANCER RECURRENT
     Dosage: DOSAGE IS UNCERTAIN
     Route: 041
  3. OXALIPLATIN [Concomitant]
     Indication: COLORECTAL CANCER RECURRENT
     Route: 041

REACTIONS (2)
  - ILEUS [None]
  - COLITIS ISCHAEMIC [None]
